FAERS Safety Report 8000488-3 (Version None)
Quarter: 2011Q4

REPORT INFORMATION
  Report Type: 
  Country: None (occurrence: None)
  Receive Date: 20111222
  Receipt Date: 20111214
  Transmission Date: 20120403
  Serious: Yes (Life-Threatening, Hospitalization)
  Sender: FDA-Public Use
  Company Number: US-BAYER-2011-042312

PATIENT
  Age: 43 Year
  Sex: Female
  Weight: 75 kg

DRUGS (25)
  1. OMNICEF [Concomitant]
     Dosage: 300 MG, UNK
     Route: 048
     Dates: start: 20041226, end: 20060101
  2. NEXIUM [Concomitant]
     Indication: GASTROOESOPHAGEAL REFLUX DISEASE
     Dosage: 40 MG, QD
     Route: 048
     Dates: start: 20050219
  3. ALPRAZOLAM [Concomitant]
     Dosage: 1 MG, UNK
     Route: 048
     Dates: start: 20050304
  4. SINGULAIR [Concomitant]
     Indication: ASTHMA
     Dosage: 10 MG, QD
     Dates: start: 20050303
  5. TRIAMTERENE AND HYDROCHLOROTHIAZIDE [Concomitant]
     Dosage: UNK
     Route: 048
     Dates: start: 20041227
  6. ZOVIRAX [Concomitant]
     Dosage: 5 %, UNK
     Route: 061
     Dates: start: 20050303
  7. DOC-Q-LACE [Concomitant]
     Dosage: 100 MG, UNK
     Route: 048
     Dates: start: 20050228
  8. WARFARIN SODIUM [Concomitant]
     Dosage: 5 MG, UNK
     Dates: start: 20050317
  9. NASONEX [Concomitant]
     Dosage: UNK
     Route: 045
     Dates: start: 20041226, end: 20081101
  10. YASMIN [Suspect]
     Indication: INSOMNIA
  11. DIOVAN [Concomitant]
     Indication: HYPERTENSION
     Dosage: 80 MG, QD
     Route: 048
     Dates: start: 20041001, end: 20060401
  12. FLONASE [Concomitant]
     Dosage: UNK
     Route: 045
     Dates: start: 20020412, end: 20060301
  13. AMBIEN [Concomitant]
     Indication: SLEEP DISORDER
     Dosage: 10 MG, HS
     Route: 048
     Dates: start: 20050219
  14. YASMIN [Suspect]
     Indication: CONTRACEPTION
     Dosage: UNK
     Dates: start: 20020611, end: 20050613
  15. YASMIN [Suspect]
     Indication: HOT FLUSH
  16. NASACORT AQ [Concomitant]
     Dosage: UNK
     Route: 045
     Dates: start: 20041226, end: 20081101
  17. CITALOPRAM [Concomitant]
     Indication: DEPRESSION
     Dosage: 40 MG, QD
     Route: 048
  18. LEVAQUIN [Concomitant]
     Dosage: 500 MG, QD
     Route: 048
     Dates: start: 20050303, end: 20050313
  19. PROMETHAZINE [Concomitant]
     Indication: NAUSEA
     Dosage: 25 MG, UNK
     Route: 054
     Dates: start: 20050316
  20. AUGMENTIN [Concomitant]
     Dosage: UNK
     Route: 048
     Dates: start: 20050228, end: 20050310
  21. MULTI-VITAMIN [Concomitant]
     Dosage: UNK UNK, QD
     Route: 048
  22. BENZONATATE [Concomitant]
     Indication: COUGH
     Dosage: 100 MG, UNK
     Route: 048
     Dates: start: 20050303
  23. ZYRTEC [Concomitant]
     Dosage: 10 MG, UNK
     Route: 048
     Dates: start: 20050314
  24. ADVAIR DISKUS 100/50 [Concomitant]
     Indication: ASTHMA
     Dosage: UNK
     Dates: start: 20040830, end: 20100101
  25. HYDROCODONE BITARTRATE AND ACETAMINOPHEN [Concomitant]
     Dosage: UNK
     Route: 048
     Dates: start: 20050228

REACTIONS (6)
  - PULMONARY EMBOLISM [None]
  - ANXIETY [None]
  - EMOTIONAL DISTRESS [None]
  - PAIN [None]
  - DYSPNOEA [None]
  - PANIC ATTACK [None]
